FAERS Safety Report 5215601-0 (Version None)
Quarter: 2007Q1

REPORT INFORMATION
  Report Type: 
  Country: None (occurrence: None)
  Receive Date: 20070123
  Receipt Date: 20070112
  Transmission Date: 20070707
  Serious: Yes (Hospitalization)
  Sender: FDA-Public Use
  Company Number: PHBS2007CH00842

PATIENT
  Age: 65 Year
  Sex: Male

DRUGS (8)
  1. ZOMETA [Suspect]
     Indication: MULTIPLE MYELOMA
     Dosage: 4 MG, PER MONTH
     Route: 042
     Dates: start: 20050812, end: 20061101
  2. ZOMETA [Suspect]
     Dosage: 3 MG, ONCE/SINGLE
     Route: 042
     Dates: start: 20061201, end: 20061201
  3. VINCRISTINE + ADRIAMYCIN + DEXAMETHASONE [Concomitant]
     Route: 065
     Dates: end: 20051201
  4. HEMATOPOETIC PROGENITOR CELLS HUMAN [Concomitant]
     Dosage: AUTOLOGOUS STEM CELL TRANSPLANTATIONS
     Route: 065
  5. HEMATOPOETIC PROGENITOR CELLS HUMAN [Concomitant]
     Dosage: AUTOLOGOUS STEM CELL TRANSPLANTATIONS
  6. MELPHALAN [Concomitant]
     Dosage: PRE-AUTOLOGOUS STEM CELL TRANSPLANTATIONS
     Route: 065
     Dates: start: 20060205, end: 20060205
  7. MELPHALAN [Concomitant]
     Dosage: PRE-AUTOLOGOUS STEM CELL TRANSPLANTATIONS
     Route: 065
     Dates: start: 20060621, end: 20060621
  8. NORVASC [Concomitant]
     Indication: HYPERTENSION
     Dosage: 10 MG/D

REACTIONS (15)
  - ADRENAL GLOMERULAR ZONE ABNORMAL [None]
  - ANURIA [None]
  - ASCITES [None]
  - BLOOD CREATININE INCREASED [None]
  - BLOOD UREA INCREASED [None]
  - HYPOALBUMINAEMIA [None]
  - KIDNEY FIBROSIS [None]
  - NEPHRITIS INTERSTITIAL [None]
  - NEPHROSCLEROSIS [None]
  - NEPHROTIC SYNDROME [None]
  - PROTEINURIA [None]
  - RENAL AMYLOIDOSIS [None]
  - RENAL ARTERIOSCLEROSIS [None]
  - RENAL ATROPHY [None]
  - RENAL FAILURE ACUTE [None]
